FAERS Safety Report 9626860 (Version 1)
Quarter: 2013Q4

REPORT INFORMATION
  Report Type: Spontaneous
  Country: US (occurrence: None)
  Receive Date: 20131011
  Receipt Date: 20131011
  Transmission Date: 20140711
  Serious: Yes (Hospitalization)
  Sender: FDA-Public Use
  Company Number: FK201304468

PATIENT
  Age: 17 Year
  Sex: Male

DRUGS (9)
  1. PIPERACILLIN/TAZOBACTAM [Suspect]
     Indication: FEBRILE NEUTROPENIA
  2. LEUCOVORIN (CALCIUM FOLINATE) [Concomitant]
  3. VINCRISTINE (VINCRISTINE) [Concomitant]
  4. PREDNISONE (PREDNISONE) [Concomitant]
  5. MESNA (MESNA) [Concomitant]
  6. METHOTREXATE (METHOTREXATE) [Concomitant]
  7. CYCLOPHOSPHAMIDE (CYCLOPHOSPHAMIDE) [Concomitant]
  8. VANCOMYCIN (VANCOMYCIN) [Concomitant]
  9. CEFTAZIDIME (CEFTAZIDIME) [Concomitant]

REACTIONS (1)
  - Nephropathy toxic [None]
